FAERS Safety Report 8288192-8 (Version None)
Quarter: 2012Q2

REPORT INFORMATION
  Report Type: 
  Country: None (occurrence: None)
  Receive Date: 20120416
  Receipt Date: 20120322
  Transmission Date: 20120825
  Serious: No
  Sender: FDA-Public Use
  Company Number: US-BAYER-2012-028510

PATIENT
  Sex: Female

DRUGS (1)
  1. MIRENA [Suspect]
     Indication: CONTRACEPTION
     Dosage: 24 MCG/24HR, CONT
     Dates: start: 20110901

REACTIONS (8)
  - NAUSEA [None]
  - VOMITING [None]
  - ABDOMINAL TENDERNESS [None]
  - PAIN [None]
  - BACK PAIN [None]
  - UTERINE SPASM [None]
  - DIARRHOEA [None]
  - ABDOMINAL DISTENSION [None]
